FAERS Safety Report 4353119-8 (Version None)
Quarter: 2004Q2

REPORT INFORMATION
  Report Type: 
  Country: None (occurrence: None)
  Receive Date: 20040430
  Receipt Date: 20040130
  Transmission Date: 20050107
  Serious: No
  Sender: FDA-Public Use
  Company Number: 204488

PATIENT
  Age: 23 Year
  Sex: Female
  Weight: 72.6 kg

DRUGS (5)
  1. XOLAIR [Suspect]
     Indication: ASTHMA
     Dosage: 375 MG Q2W SUBCUTANEOUS
     Route: 058
     Dates: start: 20040129, end: 20040129
  2. ADVAIR (SALMETEROL XINAFOATE, FLUTICASONE PROPIONATE) [Concomitant]
  3. SINGULAIR [Concomitant]
  4. ALBUTEROL (ALBUTEROL SULFATE ALBUTEROL) [Concomitant]
  5. SOLU-MEDROL (METHYLPEDNISOLONE SODIUM SUCCINATE) [Concomitant]

REACTIONS (1)
  - INJECTION SITE REACTION [None]
